FAERS Safety Report 4989507-6 (Version None)
Quarter: 2006Q2

REPORT INFORMATION
  Report Type: 
  Country: None (occurrence: None)
  Receive Date: 20060502
  Receipt Date: 20050309
  Transmission Date: 20061013
  Serious: Yes (Hospitalization, Disabling)
  Sender: FDA-Public Use
  Company Number: US-MERCK-0503USA01667

PATIENT
  Age: 55 Year
  Sex: Male
  Weight: 95 kg

DRUGS (2)
  1. VIOXX [Suspect]
     Indication: ARTHRITIS
     Route: 048
     Dates: start: 20010101, end: 20031001
  2. LIPITOR [Concomitant]
     Route: 065
     Dates: end: 20030901

REACTIONS (18)
  - ANAEMIA [None]
  - ANION GAP [None]
  - ASTHMA [None]
  - BACK PAIN [None]
  - BENIGN PROSTATIC HYPERPLASIA [None]
  - BLADDER OBSTRUCTION [None]
  - BRONCHIAL DISORDER [None]
  - DEPRESSION [None]
  - DRUG ABUSER [None]
  - HERNIA [None]
  - HYPOTENSION [None]
  - INTERVERTEBRAL DISC DEGENERATION [None]
  - METABOLIC ACIDOSIS [None]
  - OBSTRUCTIVE UROPATHY [None]
  - PNEUMONIA [None]
  - RENAL FAILURE ACUTE [None]
  - UPPER RESPIRATORY TRACT CONGESTION [None]
  - URINARY RETENTION [None]
